FAERS Safety Report 14079538 (Version 6)
Quarter: 2018Q1

REPORT INFORMATION
  Report Type: Spontaneous
  Country: AT (occurrence: AT)
  Receive Date: 20171012
  Receipt Date: 20180329
  Transmission Date: 20180508
  Serious: Yes (Hospitalization, Other)
  Sender: FDA-Public Use
  Company Number: AT-ELI_LILLY_AND_COMPANY-AT201710001235

PATIENT
  Age: 76 Year
  Sex: Female

DRUGS (35)
  1. RISPERDAL [Interacting]
     Active Substance: RISPERIDONE
     Dosage: 0.5 MG, UNKNOWN
     Route: 048
     Dates: start: 20170731
  2. MOLAXOLE [Concomitant]
     Active Substance: POLYETHYLENE GLYCOL 3350\POTASSIUM CHLORIDE\SODIUM BICARBONATE\SODIUM CHLORIDE
     Indication: PRODUCT USED FOR UNKNOWN INDICATION
     Dosage: 1 DF, UNKNOWN
     Route: 065
     Dates: start: 20170802
  3. XANOR [Interacting]
     Active Substance: ALPRAZOLAM
     Dosage: 1 MG, UNKNOWN
     Route: 048
     Dates: start: 20170810, end: 20170810
  4. XANOR [Interacting]
     Active Substance: ALPRAZOLAM
     Dosage: 0.75 MG, UNKNOWN
     Route: 048
     Dates: start: 20170811, end: 20170813
  5. TRITTICO [Concomitant]
     Active Substance: TRAZODONE HYDROCHLORIDE
     Dosage: 100 MG, UNKNOWN
     Route: 065
     Dates: start: 20170823
  6. RISPERDAL [Interacting]
     Active Substance: RISPERIDONE
     Dosage: 2 MG, UNKNOWN
     Route: 048
     Dates: start: 20170803, end: 20170821
  7. XANOR [Interacting]
     Active Substance: ALPRAZOLAM
     Dosage: 1.25 MG, UNKNOWN
     Route: 048
     Dates: start: 20170809, end: 20170809
  8. ANTIBIOPHILUS [Concomitant]
     Indication: PRODUCT USED FOR UNKNOWN INDICATION
     Dosage: 1 DF, UNKNOWN
     Route: 065
     Dates: start: 20170811, end: 20170816
  9. TRITTICO [Concomitant]
     Active Substance: TRAZODONE HYDROCHLORIDE
     Indication: PRODUCT USED FOR UNKNOWN INDICATION
     Dosage: 50 MG, UNKNOWN
     Route: 065
     Dates: start: 20170817, end: 20170822
  10. DULOXETINE HYDROCHLORIDE. [Interacting]
     Active Substance: DULOXETINE HYDROCHLORIDE
     Dosage: 60 MG, UNKNOWN
     Route: 048
     Dates: start: 20170817, end: 20170819
  11. XANOR [Interacting]
     Active Substance: ALPRAZOLAM
     Dosage: 0.5 MG, UNKNOWN
     Route: 048
     Dates: start: 20170814, end: 20170815
  12. XANOR [Interacting]
     Active Substance: ALPRAZOLAM
     Dosage: 0.25 MG, UNKNOWN
     Route: 048
     Dates: start: 20170816, end: 20170816
  13. NACL [Concomitant]
     Active Substance: SODIUM CHLORIDE
     Indication: PRODUCT USED FOR UNKNOWN INDICATION
     Dosage: UNK UNK, UNKNOWN
     Route: 048
     Dates: start: 20170802
  14. NACL [Concomitant]
     Active Substance: SODIUM CHLORIDE
     Dosage: 8 DF, UNKNOWN
     Route: 048
     Dates: start: 20170807, end: 20170821
  15. NACL [Concomitant]
     Active Substance: SODIUM CHLORIDE
     Dosage: 6 DF, UNKNOWN
     Route: 048
     Dates: start: 20170822
  16. NACL [Concomitant]
     Active Substance: SODIUM CHLORIDE
     Dosage: 6 DF, UNKNOWN
     Route: 048
  17. MONURIL [Concomitant]
     Active Substance: FOSFOMYCIN SODIUM
     Indication: PRODUCT USED FOR UNKNOWN INDICATION
     Dosage: 3 G, UNKNOWN
     Route: 065
     Dates: start: 20170805, end: 20170805
  18. SELEXID                            /00445301/ [Concomitant]
     Active Substance: AMDINOCILLIN PIVOXIL HYDROCHLORIDE
     Dosage: 200 MG, UNKNOWN
     Route: 048
     Dates: start: 20170828, end: 20170828
  19. ATARAX [Concomitant]
     Active Substance: HYDROXYZINE HYDROCHLORIDE
     Indication: PRODUCT USED FOR UNKNOWN INDICATION
     Dosage: 25 MG, UNKNOWN
     Route: 065
     Dates: start: 20170824
  20. DULOXETINE HYDROCHLORIDE. [Suspect]
     Active Substance: DULOXETINE HYDROCHLORIDE
     Indication: PRODUCT USED FOR UNKNOWN INDICATION
     Dosage: 30 MG, UNKNOWN
     Route: 048
     Dates: start: 20170802, end: 20170804
  21. DULOXETINE HYDROCHLORIDE. [Interacting]
     Active Substance: DULOXETINE HYDROCHLORIDE
     Dosage: 60 MG, UNKNOWN
     Route: 048
     Dates: start: 20170805, end: 20170808
  22. DULOXETINE HYDROCHLORIDE. [Interacting]
     Active Substance: DULOXETINE HYDROCHLORIDE
     Dosage: 90 MG, UNKNOWN
     Route: 048
     Dates: start: 20170809, end: 20170816
  23. MIRTABENE [Interacting]
     Active Substance: MIRTAZAPINE
     Indication: PRODUCT USED FOR UNKNOWN INDICATION
     Dosage: 45 MG, DAILY
     Route: 048
     Dates: start: 20170701
  24. NEUROMULTIVIT [Concomitant]
     Active Substance: CYANOCOBALAMIN\PYRIDOXINE\THIAMINE
     Indication: PRODUCT USED FOR UNKNOWN INDICATION
     Dosage: 3 DF, UNKNOWN
     Route: 048
     Dates: start: 20170802, end: 20170819
  25. RISPERDAL [Interacting]
     Active Substance: RISPERIDONE
     Dosage: 1.5 MG, UNKNOWN
     Route: 048
     Dates: start: 20170822
  26. MIRTABENE [Interacting]
     Active Substance: MIRTAZAPINE
     Dosage: 45 MG, DAILY
     Route: 048
     Dates: start: 20170801, end: 20170816
  27. XANOR [Interacting]
     Active Substance: ALPRAZOLAM
     Indication: PRODUCT USED FOR UNKNOWN INDICATION
     Dosage: 1.5 MG, UNKNOWN
     Route: 048
     Dates: start: 20170802, end: 20170808
  28. NACL [Concomitant]
     Active Substance: SODIUM CHLORIDE
     Dosage: 7 DF, UNKNOWN
     Route: 048
     Dates: start: 20170806, end: 20170806
  29. NACL [Concomitant]
     Active Substance: SODIUM CHLORIDE
     Dosage: 3 DF, UNKNOWN
     Route: 048
  30. SELEXID                            /00445301/ [Concomitant]
     Active Substance: AMDINOCILLIN PIVOXIL HYDROCHLORIDE
     Indication: PRODUCT USED FOR UNKNOWN INDICATION
     Dosage: 200 MG, UNKNOWN
     Route: 048
     Dates: start: 20170816, end: 20170816
  31. ANTIBIOPHILUS [Concomitant]
     Dosage: 3 DF, UNKNOWN
     Dates: start: 20170812, end: 20170816
  32. ALNA [Concomitant]
     Active Substance: TAMSULOSIN HYDROCHLORIDE
     Indication: PRODUCT USED FOR UNKNOWN INDICATION
     Dosage: 0.4 MG, UNKNOWN
     Route: 065
     Dates: start: 20170823
  33. RISPERDAL [Interacting]
     Active Substance: RISPERIDONE
     Indication: PRODUCT USED FOR UNKNOWN INDICATION
     Dosage: 1 MG, UNKNOWN
     Route: 048
     Dates: start: 20170801, end: 20170802
  34. MIRTABENE [Interacting]
     Active Substance: MIRTAZAPINE
     Dosage: 30 MG, UNKNOWN
     Route: 048
  35. SELEXID                            /00445301/ [Concomitant]
     Active Substance: AMDINOCILLIN PIVOXIL HYDROCHLORIDE
     Dosage: 400 MG, UNKNOWN
     Route: 048
     Dates: start: 20170817, end: 20170827

REACTIONS (5)
  - Urinary tract infection staphylococcal [Recovered/Resolved]
  - Urinary retention [Recovered/Resolved]
  - Blood pressure increased [Unknown]
  - Drug interaction [Recovered/Resolved]
  - Blood glucose increased [Recovered/Resolved]

NARRATIVE: CASE EVENT DATE: 20170807
